FAERS Safety Report 4657171-1 (Version None)
Quarter: 2005Q2

REPORT INFORMATION
  Report Type: 
  Country: None (occurrence: None)
  Receive Date: 20050506
  Receipt Date: 20050429
  Transmission Date: 20051028
  Serious: Yes (Other)
  Sender: FDA-Public Use
  Company Number: S05-USA-02235-01

PATIENT
  Age: 60 Year
  Sex: Female

DRUGS (5)
  1. LEXAPRO [Suspect]
     Indication: ANXIETY
     Dates: start: 20040401, end: 20050101
  2. LEXAPRO [Suspect]
     Indication: DEPRESSION
     Dates: start: 20040401, end: 20050101
  3. CITALOPRAM [Concomitant]
  4. LORAZEPAM [Concomitant]
  5. TEMAZEPAM [Concomitant]

REACTIONS (2)
  - AKATHISIA [None]
  - TARDIVE DYSKINESIA [None]
